FAERS Safety Report 16062176 (Version 2)
Quarter: 2019Q3

REPORT INFORMATION
  Report Type: Spontaneous
  Country: US (occurrence: US)
  Receive Date: 20190312
  Receipt Date: 20190923
  Transmission Date: 20191004
  Serious: No
  Sender: FDA-Public Use
  Company Number: US-MYLANLABS-2019M1020795

PATIENT
  Sex: Male

DRUGS (2)
  1. ASTELIN [Suspect]
     Active Substance: AZELASTINE HYDROCHLORIDE
     Indication: TINNITUS
     Dosage: UNK
     Dates: start: 2011, end: 2019
  2. VYZULTA [Concomitant]
     Active Substance: LATANOPROSTENE BUNOD
     Indication: OCULAR DISCOMFORT
     Dosage: UNK

REACTIONS (3)
  - Drug effective for unapproved indication [Recovered/Resolved]
  - Product use in unapproved indication [Unknown]
  - Intraocular pressure increased [Unknown]

NARRATIVE: CASE EVENT DATE: 2011
